FAERS Safety Report 20462289 (Version 1)
Quarter: 2022Q1

REPORT INFORMATION
  Report Type: Spontaneous
  Country: FR (occurrence: FR)
  Receive Date: 20220211
  Receipt Date: 20220211
  Transmission Date: 20220424
  Serious: Yes (Hospitalization, Other)
  Sender: FDA-Public Use
  Company Number: None

PATIENT
  Age: 52 Year
  Sex: Male
  Weight: 98.8 kg

DRUGS (2)
  1. ADVIL [Suspect]
     Active Substance: IBUPROFEN
     Indication: COVID-19
     Dosage: UNK, NP
     Route: 048
     Dates: start: 202201, end: 202201
  2. DOLIPRANE [Suspect]
     Active Substance: ACETAMINOPHEN
     Indication: COVID-19
     Dosage: 4 G
     Route: 048
     Dates: start: 20220107, end: 202201

REACTIONS (1)
  - Agranulocytosis [Recovered/Resolved with Sequelae]

NARRATIVE: CASE EVENT DATE: 20220121
